FAERS Safety Report 9658690 (Version 1)
Quarter: 2013Q4

REPORT INFORMATION
  Report Type: Spontaneous
  Country: US (occurrence: US)
  Receive Date: 20131030
  Receipt Date: 20131030
  Transmission Date: 20140711
  Serious: Yes (Disabling)
  Sender: FDA-Public Use
  Company Number: US-NAPPMUNDI-USA-2011-0077676

PATIENT
  Age: 29 Year
  Sex: Female

DRUGS (1)
  1. OXYCONTIN (NDA 22-272) [Suspect]
     Indication: DRUG DEPENDENCE

REACTIONS (1)
  - Drug dependence [Unknown]
